FAERS Safety Report 4292231-9 (Version None)
Quarter: 2004Q1

REPORT INFORMATION
  Report Type: 
  Country: None (occurrence: None)
  Receive Date: 20040211
  Receipt Date: 20030324
  Transmission Date: 20041129
  Serious: Yes (Other)
  Sender: FDA-Public Use
  Company Number: US-GLAXOSMITHKLINE-A0401595A

PATIENT
  Age: 60 Year
  Sex: Female

DRUGS (1)
  1. LOTRONEX [Suspect]
     Indication: ILL-DEFINED DISORDER
     Route: 048

REACTIONS (1)
  - SMALL INTESTINAL OBSTRUCTION [None]
